FAERS Safety Report 8612802 (Version 2)
Quarter: 2014Q1

REPORT INFORMATION
  Report Type: Spontaneous
  Country: US (occurrence: None)
  Receive Date: 20120323
  Receipt Date: 20130305
  Transmission Date: 20141002
  Serious: Yes (Other)
  Sender: FDA-Public Use
  Company Number: 163-21880-11120944

PATIENT
  Age: 67 Year
  Sex: Female

DRUGS (8)
  1. REVLIMID [Suspect]
     Indication: PLASMA CELL MYELOMA
     Dosage: 10 MG, DAILY X 21D/28D, PO
     Route: 048
     Dates: start: 20111017
  2. SERTRALINE HYDROCHLORIDE [Concomitant]
  3. TRAZODONE HYDROCHLORIDE [Concomitant]
  4. PROCHLORPERAZINE (PROCHLORPERAZINE) (UNKNOWN) [Concomitant]
  5. LORAZEPAM [Concomitant]
  6. HYDROCODONE/APAP (VICODIN) [Concomitant]
  7. LISINOPRIL (LISINOPRIL) [Concomitant]
  8. REGULAR INSULIN (INSULIN) [Concomitant]

REACTIONS (2)
  - Deep vein thrombosis [None]
  - Deep vein thrombosis [None]
